FAERS Safety Report 21669724 (Version 1)
Quarter: 2022Q4

REPORT INFORMATION
  Report Type: Spontaneous
  Country: ES (occurrence: ES)
  Receive Date: 20221201
  Receipt Date: 20221201
  Transmission Date: 20230112
  Serious: Yes (Death, Hospitalization, Other)
  Sender: FDA-Public Use
  Company Number: ES-GILEAD-2022-0607249

PATIENT

DRUGS (5)
  1. YESCARTA [Suspect]
     Active Substance: AXICABTAGENE CILOLEUCEL
     Indication: Product used for unknown indication
     Dosage: UNK
     Route: 065
     Dates: start: 20210511, end: 20210511
  2. RITUXIMAB [Concomitant]
     Active Substance: RITUXIMAB
     Dosage: X 5
  3. GEMCITABINE [Concomitant]
     Active Substance: GEMCITABINE
     Dosage: X5
  4. DEXAMETHASONE [Concomitant]
     Active Substance: DEXAMETHASONE
     Dosage: X5
  5. CISPLATIN [Concomitant]
     Active Substance: CISPLATIN
     Dosage: X5

REACTIONS (3)
  - Transplantation complication [Fatal]
  - Death [Fatal]
  - Disease progression [Fatal]

NARRATIVE: CASE EVENT DATE: 20220923
